FAERS Safety Report 11801987 (Version 3)
Quarter: 2016Q1

REPORT INFORMATION
  Report Type: Other
  Country: GB (occurrence: GB)
  Receive Date: 20151204
  Receipt Date: 20160127
  Transmission Date: 20160525
  Serious: Yes (Life-Threatening, Hospitalization)
  Sender: FDA-Public Use
  Company Number: GB-MYLANLABS-2015M1041607

PATIENT

DRUGS (2)
  1. BUTRANS [Suspect]
     Active Substance: BUPRENORPHINE
     Dosage: 15 ?G, UNK
     Route: 062
     Dates: end: 20151108
  2. LISINOPRIL. [Suspect]
     Active Substance: LISINOPRIL
     Dosage: UNK
     Route: 048
     Dates: end: 20151108

REACTIONS (4)
  - Acute kidney injury [Not Recovered/Not Resolved]
  - Somnolence [Not Recovered/Not Resolved]
  - Contraindicated drug administered [Not Recovered/Not Resolved]
  - Toxicity to various agents [Recovered/Resolved]

NARRATIVE: CASE EVENT DATE: 20151108
